FAERS Safety Report 6772289-5 (Version None)
Quarter: 2010Q2

REPORT INFORMATION
  Report Type: 
  Country: None (occurrence: None)
  Receive Date: 20100616
  Receipt Date: 20100223
  Transmission Date: 20101027
  Serious: No
  Sender: FDA-Public Use
  Company Number: US-ASTRAZENECA-2010SE04059

PATIENT
  Sex: Female
  Weight: 64.4 kg

DRUGS (4)
  1. PULMICORT FLEXHALER [Suspect]
     Indication: BRONCHIAL HYPERREACTIVITY
     Dosage: 180 MCG 1 PUFF DAILY
     Route: 055
     Dates: start: 20091019
  2. LEXAPRO [Concomitant]
  3. BENICAR [Concomitant]
  4. ASPIRIN [Concomitant]

REACTIONS (4)
  - DYSPHONIA [None]
  - ORAL PAIN [None]
  - OROPHARYNGEAL PAIN [None]
  - STOMATITIS [None]
